FAERS Safety Report 23508580 (Version 2)
Quarter: 2024Q1

REPORT INFORMATION
  Report Type: Spontaneous
  Country: JP (occurrence: None)
  Receive Date: 20240209
  Receipt Date: 20240220
  Transmission Date: 20240410
  Serious: Yes (Other)
  Sender: FDA-Public Use
  Company Number: 2024A030945

PATIENT
  Age: 84 Year
  Sex: Female

DRUGS (6)
  1. ANDEXANET ALFA [Suspect]
     Active Substance: ANDEXANET ALFA
     Dosage: 400.0MG UNKNOWN
     Route: 040
  2. EDOXABAN [Concomitant]
     Active Substance: EDOXABAN
     Route: 048
  3. HEPARIN [Concomitant]
     Active Substance: HEPARIN SODIUM
     Dosage: 300 IU/KG
  4. HEPARIN [Concomitant]
     Active Substance: HEPARIN SODIUM
     Dosage: 200 IU/KG
  5. NAFAMOSTAT MESYLATE [Concomitant]
     Active Substance: NAFAMOSTAT MESYLATE
     Dosage: 10.0MG ONCE/SINGLE ADMINISTRATION
     Route: 042
  6. NAFAMOSTAT MESYLATE [Concomitant]
     Active Substance: NAFAMOSTAT MESYLATE
     Dosage: CONTINUOUS INFUSION OF 20-30 MG/H ONCE/SINGLE ADMINISTRATION
     Route: 042

REACTIONS (1)
  - Heparin resistance [Unknown]
